FAERS Safety Report 21059123 (Version 1)
Quarter: 2022Q3

REPORT INFORMATION
  Report Type: Spontaneous
  Country: JP (occurrence: JP)
  Receive Date: 20220708
  Receipt Date: 20220708
  Transmission Date: 20221026
  Serious: Yes (Hospitalization)
  Sender: FDA-Public Use
  Company Number: JP-AMGEN-JPNSP2021193578

PATIENT
  Age: 87 Year
  Sex: Female

DRUGS (5)
  1. EVENITY [Suspect]
     Active Substance: ROMOSOZUMAB-AQQG
     Indication: Osteoporosis
     Dosage: 210 MILLIGRAM, QMO
     Route: 058
     Dates: start: 20210911, end: 20211106
  2. CALONAL [Concomitant]
     Active Substance: ACETAMINOPHEN
     Indication: Pain
     Dosage: UNK (TWO UNITS)
     Dates: start: 20210614
  3. LOXOPROFEN SODIUM [Concomitant]
     Active Substance: LOXOPROFEN SODIUM
     Indication: Pain
     Dosage: 100 MILLIGRAM
     Dates: start: 20211009
  4. BONVIVA [Concomitant]
     Active Substance: IBANDRONATE SODIUM
     Indication: Osteoporosis
     Dosage: 1 MILLIGRAM, QMO
     Route: 042
     Dates: start: 20190806
  5. ELCATONIN [Concomitant]
     Active Substance: ELCATONIN
     Indication: Osteoporosis
     Dosage: UNK UNK, QWK
     Dates: start: 20210624, end: 20210904

REACTIONS (1)
  - Arterial thrombosis [Recovering/Resolving]

NARRATIVE: CASE EVENT DATE: 20211110
